FAERS Safety Report 5047026-5 (Version None)
Quarter: 2006Q3

REPORT INFORMATION
  Report Type: 
  Country: None (occurrence: None)
  Receive Date: 20060703
  Receipt Date: 20060619
  Transmission Date: 20061208
  Serious: Yes (Hospitalization)
  Sender: FDA-Public Use
  Company Number: 2006078049

PATIENT
  Sex: 0

DRUGS (1)
  1. DILANTIN [Suspect]

REACTIONS (1)
  - DRUG LEVEL INCREASED [None]
